FAERS Safety Report 7581585-3 (Version None)
Quarter: 2011Q2

REPORT INFORMATION
  Report Type: 
  Country: None (occurrence: None)
  Receive Date: 20110629
  Receipt Date: 20110616
  Transmission Date: 20111010
  Serious: Yes (Hospitalization)
  Sender: FDA-Public Use
  Company Number: HU-ELI_LILLY_AND_COMPANY-HU201103006631

PATIENT
  Age: 81 Year
  Sex: Female

DRUGS (3)
  1. TENSIOMIN [Concomitant]
     Indication: HYPERTENSION
     Dosage: 12.5 MG, BID
     Route: 048
  2. XANAX [Concomitant]
     Dosage: 0.5 MG, QD
     Route: 048
  3. FORTEO [Suspect]
     Indication: OSTEOPOROSIS
     Dosage: 20 UG/80UL, QD
     Route: 058
     Dates: start: 20110321

REACTIONS (4)
  - OSTEOPOROSIS [None]
  - SPINAL COLUMN INJURY [None]
  - OSTEOARTHRITIS [None]
  - HEADACHE [None]
